FAERS Safety Report 18482491 (Version 1)
Quarter: 2020Q4

REPORT INFORMATION
  Report Type: Spontaneous
  Country: US (occurrence: US)
  Receive Date: 20201109
  Receipt Date: 20201109
  Transmission Date: 20210114
  Serious: No
  Sender: FDA-Public Use
  Company Number: US-ALLERGAN-2012089US

PATIENT
  Sex: Female

DRUGS (2)
  1. PLAN B [Concomitant]
     Active Substance: LEVONORGESTREL
     Indication: CONTRACEPTION
  2. LO LOESTRIN FE [Suspect]
     Active Substance: ETHINYL ESTRADIOL\NORETHINDRONE ACETATE
     Indication: CONTRACEPTION
     Dosage: UNK UNK, QD
     Route: 048
     Dates: start: 202002, end: 20200425

REACTIONS (2)
  - Rash [Recovered/Resolved]
  - Menstruation irregular [Recovered/Resolved]
